FAERS Safety Report 4342246-7 (Version None)
Quarter: 2004Q2

REPORT INFORMATION
  Report Type: 
  Country: None (occurrence: None)
  Receive Date: 20040415
  Receipt Date: 20040402
  Transmission Date: 20050107
  Serious: Yes (Hospitalization)
  Sender: FDA-Public Use
  Company Number: FR-JNJFOC-20040400575

PATIENT
  Age: 79 Year
  Sex: Male
  Weight: 78 kg

DRUGS (10)
  1. DURAGESIC [Suspect]
     Indication: DRUG USE FOR UNKNOWN INDICATION
     Dosage: 50 UG/HR, 1 IN 3 DAY; TRANSDERMAL
     Route: 062
     Dates: start: 20040218, end: 20040220
  2. SEVREDOL (MORPHINE SULFATE) [Suspect]
     Indication: DRUG USE FOR UNKNOWN INDICATION
     Dosage: 10 MG, 1 IN 1 DAY; ORAL
     Route: 048
     Dates: start: 20040218, end: 20040220
  3. CIPRALAN [Concomitant]
  4. CELECTOL [Concomitant]
  5. PRESTOLE (DYAZIDE) [Concomitant]
  6. RAMIPRIL [Concomitant]
  7. ACETAMINOPHEN [Concomitant]
  8. OMEPRAZOLE [Concomitant]
  9. ALLOPURINOL [Concomitant]
  10. LORAZEPAM [Concomitant]

REACTIONS (13)
  - ARTHROPATHY [None]
  - BLADDER DISTENSION [None]
  - CARDIAC MURMUR [None]
  - CONFUSIONAL STATE [None]
  - DISTURBANCE IN ATTENTION [None]
  - DRUG INTERACTION [None]
  - FALL [None]
  - HEMIPARESIS [None]
  - OEDEMA PERIPHERAL [None]
  - OVERDOSE [None]
  - PITTING OEDEMA [None]
  - RENAL FAILURE ACUTE [None]
  - SOMNOLENCE [None]
